FAERS Safety Report 6444645-6 (Version None)
Quarter: 2009Q4

REPORT INFORMATION
  Report Type: 
  Country: None (occurrence: None)
  Receive Date: 20091110
  Receipt Date: 20090810
  Transmission Date: 20100525
  Serious: No
  Sender: FDA-Public Use
  Company Number: 1000008093

PATIENT
  Age: 54 Year
  Sex: Female

DRUGS (11)
  1. SAVELLA [Suspect]
     Indication: FIBROMYALGIA
     Dosage: SEE IMAGE
     Route: 048
     Dates: start: 20090727, end: 20090727
  2. SAVELLA [Suspect]
     Indication: FIBROMYALGIA
     Dosage: SEE IMAGE
     Route: 048
     Dates: start: 20090728, end: 20090729
  3. SAVELLA [Suspect]
     Indication: FIBROMYALGIA
     Dosage: SEE IMAGE
     Route: 048
     Dates: start: 20090730, end: 20090802
  4. SAVELLA [Suspect]
     Indication: FIBROMYALGIA
     Dosage: SEE IMAGE
     Route: 048
     Dates: start: 20090803
  5. KLONOPIN [Suspect]
     Indication: NERVOUSNESS
     Dosage: 1 MG (0.5 MG, 2 IN 1 D), ORAL
     Route: 048
     Dates: start: 20090728
  6. LISINOPRIL AND HYDROCHLOROTHIAZIDE [Suspect]
     Indication: HYPERTENSION
     Dosage: 10/12.5 MG ONCE DAILY (1 IN 1 D)
     Dates: start: 20090729
  7. BIEST [Concomitant]
  8. ALENDRONATE SODIUM [Concomitant]
  9. EVISTA [Concomitant]
  10. PREVACID [Concomitant]
  11. SUPPLEMENTS [Concomitant]

REACTIONS (2)
  - MOOD SWINGS [None]
  - RASH [None]
